FAERS Safety Report 7066192-3 (Version None)
Quarter: 2010Q4

REPORT INFORMATION
  Report Type: 
  Country: None (occurrence: None)
  Receive Date: 20101027
  Receipt Date: 20100611
  Transmission Date: 20110411
  Serious: No
  Sender: FDA-Public Use
  Company Number: HQWYE608710APR03

PATIENT
  Sex: Female

DRUGS (2)
  1. PREMPRO [Suspect]
     Dosage: UNSPECIFIED
     Route: 048
  2. PREMARIN [Suspect]

REACTIONS (14)
  - AGITATION [None]
  - ALOPECIA [None]
  - ANGER [None]
  - CHEST PAIN [None]
  - CHILLS [None]
  - CRYING [None]
  - DEPRESSION [None]
  - DYSPEPSIA [None]
  - HEADACHE [None]
  - HOT FLUSH [None]
  - LIBIDO DECREASED [None]
  - NERVOUSNESS [None]
  - PARAESTHESIA [None]
  - SOMNOLENCE [None]
